FAERS Safety Report 15705670 (Version 2)
Quarter: 2018Q4

REPORT INFORMATION
  Report Type: Spontaneous
  Country: US (occurrence: US)
  Receive Date: 20181210
  Receipt Date: 20181224
  Transmission Date: 20190205
  Serious: No
  Sender: FDA-Public Use
  Company Number: US-HORIZON-PEN-1333-2018

PATIENT
  Age: 59 Year
  Sex: Female

DRUGS (13)
  1. BABY ASPIRIN [Concomitant]
     Active Substance: ASPIRIN
  2. WELLBUTRIN [Concomitant]
     Active Substance: BUPROPION HYDROCHLORIDE
  3. TRIBROMIDE [Concomitant]
  4. XANAX [Concomitant]
     Active Substance: ALPRAZOLAM
  5. PLAQUENIL [Concomitant]
     Active Substance: HYDROXYCHLOROQUINE SULFATE
  6. CARVEDILOL. [Concomitant]
     Active Substance: CARVEDILOL
  7. PENNSAID [Suspect]
     Active Substance: DICLOFENAC SODIUM
     Indication: RHEUMATOID ARTHRITIS
     Dosage: 2 PUMPS ON EACH KNEE AS NEEDED
     Dates: end: 201811
  8. ZYRTEC [Concomitant]
     Active Substance: CETIRIZINE HYDROCHLORIDE
  9. TRAZODONE [Concomitant]
     Active Substance: TRAZODONE HYDROCHLORIDE
  10. BIOTIN [Concomitant]
     Active Substance: BIOTIN
  11. CALTRATE [Concomitant]
     Active Substance: CALCIUM CARBONATE
  12. ATORVASTATIN [Concomitant]
     Active Substance: ATORVASTATIN
  13. BRILINTA [Concomitant]
     Active Substance: TICAGRELOR

REACTIONS (9)
  - Application site erythema [Recovered/Resolved]
  - Application site pain [Unknown]
  - Application site vesicles [Not Recovered/Not Resolved]
  - Intentional product use issue [Unknown]
  - Application site pruritus [Not Recovered/Not Resolved]
  - Off label use [Unknown]
  - Hypersensitivity [Not Recovered/Not Resolved]
  - Application site warmth [Not Recovered/Not Resolved]
  - Dry skin [Not Recovered/Not Resolved]

NARRATIVE: CASE EVENT DATE: 2017
